FAERS Safety Report 8417502-3 (Version None)
Quarter: 2012Q2

REPORT INFORMATION
  Report Type: 
  Country: None (occurrence: None)
  Receive Date: 20120606
  Receipt Date: 20120511
  Transmission Date: 20120825
  Serious: Yes (Other)
  Sender: FDA-Public Use
  Company Number: JP-UCBSA-057420

PATIENT
  Age: 40 Year
  Sex: Male

DRUGS (1)
  1. XYZAL [Suspect]
     Indication: PRURITUS
     Route: 048
     Dates: start: 20120411

REACTIONS (2)
  - GOUT [None]
  - PAIN IN EXTREMITY [None]
